FAERS Safety Report 9574743 (Version 3)
Quarter: 2013Q4

REPORT INFORMATION
  Report Type: Spontaneous
  Country: US (occurrence: US)
  Receive Date: 20131001
  Receipt Date: 20131007
  Transmission Date: 20140711
  Serious: Yes (Other)
  Sender: FDA-Public Use
  Company Number: US-AMGEN-USASP2013066227

PATIENT
  Age: 65 Year
  Sex: Male

DRUGS (17)
  1. PROCRIT [Suspect]
     Indication: NEPHROGENIC ANAEMIA
     Dosage: 60000 UNIT, QWK
     Route: 058
  2. PRILOSEC                           /00661201/ [Concomitant]
     Dosage: UNK
  3. DIOVAN [Concomitant]
     Dosage: UNK
  4. CRESTOR [Concomitant]
     Dosage: UNK
  5. TOPROL [Concomitant]
     Dosage: UNK
  6. FOLIC ACID [Concomitant]
     Dosage: UNK
  7. LISINOPRIL [Concomitant]
     Dosage: UNK
  8. FUROSEMIDE [Concomitant]
     Dosage: UNK
  9. HUMULIN R [Concomitant]
     Dosage: UNK
  10. COLCRYS [Concomitant]
     Dosage: UNK
  11. ALLOPURINOL [Concomitant]
     Dosage: UNK
  12. PREDNISONE [Concomitant]
     Dosage: UNK
  13. ANDROGEL [Concomitant]
     Dosage: UNK
  14. GLUCOSAMINE [Concomitant]
     Dosage: UNK
  15. CHONDROITIN [Concomitant]
     Dosage: UNK
  16. OMEGA 3                            /01333901/ [Concomitant]
     Dosage: UNK
  17. MULTIVITAMIN                       /00097801/ [Concomitant]
     Dosage: UNK UNK, QD

REACTIONS (1)
  - Therapeutic response decreased [Unknown]
